FAERS Safety Report 4386358-0 (Version None)
Quarter: 2004Q2

REPORT INFORMATION
  Report Type: 
  Country: None (occurrence: None)
  Receive Date: 20040623
  Receipt Date: 20040609
  Transmission Date: 20050107
  Serious: Yes (Death, Life-Threatening)
  Sender: FDA-Public Use
  Company Number: EWC040338455

PATIENT
  Age: 73 Year
  Sex: Male

DRUGS (3)
  1. GEMZAR [Suspect]
     Indication: LUNG ADENOCARCINOMA STAGE III
  2. TAXOL [Concomitant]
  3. BRIOFIL (BAMIFYLLINE HYDROCHLORIDE) [Concomitant]

REACTIONS (3)
  - ATRIAL FIBRILLATION [None]
  - SUDDEN DEATH [None]
  - VENTRICULAR FIBRILLATION [None]
